FAERS Safety Report 5223692-6 (Version None)
Quarter: 2007Q1

REPORT INFORMATION
  Report Type: 
  Country: None (occurrence: None)
  Receive Date: 20070130
  Receipt Date: 20070117
  Transmission Date: 20070707
  Serious: Yes (Hospitalization)
  Sender: FDA-Public Use
  Company Number: US-AMGEN-US207832

PATIENT
  Sex: Female

DRUGS (4)
  1. PROCRIT [Suspect]
     Indication: ANAEMIA
     Route: 065
     Dates: start: 20061001
  2. PLAVIX [Concomitant]
     Dates: end: 20070112
  3. ASPIRIN [Concomitant]
     Dates: end: 20070112
  4. ZOCOR [Concomitant]

REACTIONS (1)
  - HAEMOGLOBIN DECREASED [None]
